FAERS Safety Report 9456439 (Version 1)
Quarter: 2013Q3

REPORT INFORMATION
  Report Type: Spontaneous
  Country: MT (occurrence: None)
  Receive Date: 20130809
  Receipt Date: 20130809
  Transmission Date: 20140515
  Serious: Yes (Other)
  Sender: FDA-Public Use
  Company Number: FK201303007

PATIENT
  Age: 83 Year
  Sex: Female

DRUGS (1)
  1. PAMIDRONATE [Suspect]
     Indication: HYPERCALCAEMIA
     Dosage: 60 MG, OVER 4 HOURS. FREQUENCY UNKNOWN, INTRAVENOUS (NOT OTHERWISE SPECIFIED)
     Route: 042

REACTIONS (7)
  - Calciphylaxis [None]
  - Haemoglobin decreased [None]
  - Enterococcus test positive [None]
  - Escherichia test positive [None]
  - Proteus test positive [None]
  - Blood calcium decreased [None]
  - Blood parathyroid hormone decreased [None]
